FAERS Safety Report 4844931-7 (Version None)
Quarter: 2005Q4

REPORT INFORMATION
  Report Type: 
  Country: None (occurrence: None)
  Receive Date: 20051128
  Receipt Date: 20051109
  Transmission Date: 20060501
  Serious: Yes (Life-Threatening, Other)
  Sender: FDA-Public Use
  Company Number: 2005-02262

PATIENT
  Age: 48 Year
  Sex: Female
  Weight: 37 kg

DRUGS (8)
  1. VELCADE [Suspect]
     Indication: MULTIPLE MYELOMA
     Dosage: SEE IMAGE
     Dates: start: 20050716, end: 20050723
  2. VELCADE [Suspect]
     Indication: MULTIPLE MYELOMA
     Dosage: SEE IMAGE
     Dates: start: 20050917
  3. FENTANYL (FENTANYL) PATCH [Suspect]
     Indication: MULTIPLE MYELOMA
     Dosage: 5.00 MG, TRANSDERMAL
     Route: 062
     Dates: start: 20050711, end: 20050726
  4. ALENDRONATE SODIUM [Concomitant]
  5. DIFLUCAN (FLUCONAZOLE) CAPSULE [Concomitant]
  6. ALLOPURINOL [Concomitant]
  7. BAKTAR (SULFAMETHOXAZOLE, TRIMETHOPRIM) TABLET [Concomitant]
  8. GASTER OD (FAMOTIDINE) TABLET [Concomitant]

REACTIONS (21)
  - ATELECTASIS [None]
  - ATROPHY [None]
  - BEDRIDDEN [None]
  - BODY TEMPERATURE INCREASED [None]
  - BONE LESION [None]
  - DRUG INEFFECTIVE [None]
  - DYSPNOEA [None]
  - HYPOXIA [None]
  - INFECTION [None]
  - INTERSTITIAL LUNG DISEASE [None]
  - LUNG CONSOLIDATION [None]
  - LUNG DISORDER [None]
  - MITRAL VALVE INCOMPETENCE [None]
  - OSTEOLYSIS [None]
  - PLEURAL EFFUSION [None]
  - PYREXIA [None]
  - RIB FRACTURE [None]
  - SCAR [None]
  - STAPHYLOCOCCAL INFECTION [None]
  - TERMINAL STATE [None]
  - TRICUSPID VALVE INCOMPETENCE [None]
